FAERS Safety Report 17369814 (Version 1)
Quarter: 2020Q1

REPORT INFORMATION
  Report Type: Other
  Country: PL (occurrence: PL)
  Receive Date: 20200205
  Receipt Date: 20200205
  Transmission Date: 20200409
  Serious: Yes (Other)
  Sender: FDA-Public Use
  Company Number: PL-INVENTIA-000022

PATIENT
  Age: 58 Year
  Sex: Male

DRUGS (4)
  1. INDAPAMIDE/INDAPAMIDE HEMIHYDRATE [Concomitant]
     Active Substance: INDAPAMIDE
     Indication: PRODUCT USED FOR UNKNOWN INDICATION
  2. FLUOXETINE [Suspect]
     Active Substance: FLUOXETINE HYDROCHLORIDE
     Indication: PRODUCT USED FOR UNKNOWN INDICATION
  3. METOPROLOL. [Interacting]
     Active Substance: METOPROLOL
     Indication: CARDIOVASCULAR DISORDER
  4. ZOFENOPRIL/ZOFENOPRIL CALCIUM [Concomitant]
     Active Substance: ZOFENOPRIL
     Indication: PRODUCT USED FOR UNKNOWN INDICATION

REACTIONS (2)
  - Bradycardia [Unknown]
  - Drug interaction [Unknown]
